FAERS Safety Report 7762120-3 (Version None)
Quarter: 2011Q3

REPORT INFORMATION
  Report Type: 
  Country: None (occurrence: None)
  Receive Date: 20110920
  Receipt Date: 20110912
  Transmission Date: 20111222
  Serious: Yes (Hospitalization)
  Sender: FDA-Public Use
  Company Number: BR-BAXTER-2011BH029111

PATIENT
  Age: 11 Year
  Sex: Female
  Weight: 44 kg

DRUGS (7)
  1. MESNA [Concomitant]
     Indication: PRODUCT USED FOR UNKNOWN INDICATION
     Route: 065
     Dates: start: 20110809, end: 20110811
  2. GRANULOKINE [Concomitant]
     Indication: PRODUCT USED FOR UNKNOWN INDICATION
     Route: 065
     Dates: start: 20110816
  3. IFOSFAMIDE [Suspect]
     Indication: EWING'S SARCOMA
     Route: 042
     Dates: start: 20110809, end: 20110811
  4. BACTRIM [Concomitant]
     Indication: PRODUCT USED FOR UNKNOWN INDICATION
     Route: 065
     Dates: start: 20110809
  5. FLUCONAZOLE [Concomitant]
     Indication: PRODUCT USED FOR UNKNOWN INDICATION
     Route: 065
     Dates: start: 20110805, end: 20110806
  6. ETOPOSIDE [Suspect]
     Indication: EWING'S SARCOMA
     Route: 042
     Dates: start: 20110809, end: 20110811
  7. ANIDULAFUNGIN [Suspect]
     Indication: CANDIDIASIS
     Route: 042
     Dates: start: 20110722, end: 20110804

REACTIONS (1)
  - HERPES ZOSTER [None]
